FAERS Safety Report 5715753-X (Version None)
Quarter: 2008Q2

REPORT INFORMATION
  Report Type: 
  Country: None (occurrence: None)
  Receive Date: 20080424
  Receipt Date: 20080422
  Transmission Date: 20081010
  Serious: Yes (Death, Hospitalization)
  Sender: FDA-Public Use
  Company Number: GB-BRISTOL-MYERS SQUIBB COMPANY-13760210

PATIENT
  Age: 6 Year
  Sex: Female

DRUGS (12)
  1. CARBOPLATIN [Suspect]
     Indication: RHABDOMYOSARCOMA
     Route: 065
  2. ETOPOSIDE [Suspect]
     Indication: RHABDOMYOSARCOMA
     Route: 065
  3. IFOSFAMIDE [Suspect]
     Indication: RHABDOMYOSARCOMA
     Route: 065
  4. DACTINOMYCIN [Suspect]
     Indication: RHABDOMYOSARCOMA
     Route: 065
  5. EPIRUBICIN [Suspect]
     Indication: RHABDOMYOSARCOMA
     Route: 065
  6. VINCRISTINE [Suspect]
     Indication: RHABDOMYOSARCOMA
     Route: 065
  7. RADIOTHERAPY [Suspect]
  8. DEXAMETHASONE TAB [Suspect]
     Route: 048
  9. IMIPENEM AND CILASTATIN SODIUM [Suspect]
     Route: 048
  10. CORTICOSTEROID [Concomitant]
  11. FLUCYTOSINE [Concomitant]
  12. AMPHOTERICIN B [Concomitant]

REACTIONS (4)
  - BLOOD CULTURE POSITIVE [None]
  - FEBRILE NEUTROPENIA [None]
  - MUCOSAL INFLAMMATION [None]
  - PNEUMONITIS [None]
